FAERS Safety Report 25156366 (Version 3)
Quarter: 2025Q2

REPORT INFORMATION
  Report Type: Spontaneous
  Country: AU (occurrence: AU)
  Receive Date: 20250403
  Receipt Date: 20250424
  Transmission Date: 20250716
  Serious: Yes (Death)
  Sender: SEPTODONT
  Company Number: AU-SEPTODONT-2025019540

PATIENT
  Age: 51 Year
  Sex: Female

DRUGS (2)
  1. EPINEPHRINE\LIDOCAINE [Suspect]
     Active Substance: EPINEPHRINE\LIDOCAINE
     Indication: Dental local anaesthesia
     Route: 004
     Dates: start: 20230419, end: 20230419
  2. topical lignocaine [Concomitant]

REACTIONS (8)
  - Methaemoglobinaemia [Fatal]
  - Unresponsive to stimuli [Fatal]
  - Skin discolouration [Fatal]
  - Loss of consciousness [Fatal]
  - Malaise [Fatal]
  - Palpitations [Fatal]
  - Fatigue [Fatal]
  - Chills [Fatal]

NARRATIVE: CASE EVENT DATE: 20230419
